FAERS Safety Report 8418229-4 (Version None)
Quarter: 2012Q2

REPORT INFORMATION
  Report Type: 
  Country: None (occurrence: None)
  Receive Date: 20120531
  Receipt Date: 20120518
  Transmission Date: 20120825
  Serious: Yes (Other)
  Sender: FDA-Public Use
  Company Number: 1293442

PATIENT
  Sex: Female

DRUGS (5)
  1. METHOTREXATE [Suspect]
     Indication: PRODUCT USED FOR UNKNOWN INDICATION
     Dosage: UNKNOWN
  2. ETANERCEPT [Concomitant]
  3. LEUCOVORIN CALCIUM [Concomitant]
  4. CALCICHEW D3 [Concomitant]
  5. NAPROXEN [Concomitant]

REACTIONS (2)
  - KNEE ARTHROPLASTY [None]
  - DRUG INEFFECTIVE [None]
